FAERS Safety Report 18119839 (Version 1)
Quarter: 2020Q3

REPORT INFORMATION
  Report Type: Spontaneous
  Country: US (occurrence: US)
  Receive Date: 20200806
  Receipt Date: 20200806
  Transmission Date: 20201103
  Serious: No
  Sender: FDA-Public Use
  Company Number: US-ASTRAZENECA-2020SE70540

PATIENT
  Sex: Male

DRUGS (18)
  1. BAYER ASPIRIN [Concomitant]
     Active Substance: ASPIRIN
  2. AMLODIPINE BESYLATE. [Concomitant]
     Active Substance: AMLODIPINE BESYLATE
  3. GABAPENTIN. [Concomitant]
     Active Substance: GABAPENTIN
  4. SPIRONOLACTONE. [Concomitant]
     Active Substance: SPIRONOLACTONE
  5. CLOPIDOGREL BISULFATE. [Concomitant]
     Active Substance: CLOPIDOGREL BISULFATE
  6. METFORMIN HCL [Concomitant]
     Active Substance: METFORMIN HYDROCHLORIDE
  7. LIPITOR [Concomitant]
     Active Substance: ATORVASTATIN CALCIUM
  8. POTASSIUM CHLORIDE. [Concomitant]
     Active Substance: POTASSIUM CHLORIDE
  9. PANTAPROZOLE [Concomitant]
     Active Substance: PANTOPRAZOLE SODIUM
  10. CARVEDILOL. [Concomitant]
     Active Substance: CARVEDILOL
  11. FUROSEMIDE. [Concomitant]
     Active Substance: FUROSEMIDE
  12. BYDUREON BCISE [Suspect]
     Active Substance: EXENATIDE
     Indication: DIABETES MELLITUS
     Route: 065
  13. JARDIANCE [Concomitant]
     Active Substance: EMPAGLIFLOZIN
  14. TAMSULOSIN HCL [Concomitant]
     Active Substance: TAMSULOSIN HYDROCHLORIDE
  15. VITAMIN D2 [Concomitant]
     Active Substance: ERGOCALCIFEROL
  16. OMEGA FISH OIL [Concomitant]
     Active Substance: FISH OIL\OMEGA-3 FATTY ACIDS
  17. LEVOTHYROXINE. [Concomitant]
     Active Substance: LEVOTHYROXINE
  18. CARVEDILOL. [Concomitant]
     Active Substance: CARVEDILOL

REACTIONS (4)
  - Injection site pain [Recovered/Resolved]
  - Device leakage [Unknown]
  - Injection site haemorrhage [Recovered/Resolved]
  - Injection site mass [Recovered/Resolved]
